FAERS Safety Report 10266409 (Version 1)
Quarter: 2014Q2

REPORT INFORMATION
  Report Type: Spontaneous
  Country: US (occurrence: None)
  Receive Date: 20140625
  Receipt Date: 20140625
  Transmission Date: 20141212
  Serious: Yes (Other)
  Sender: FDA-Public Use
  Company Number: None

PATIENT
  Age: 3 Month
  Sex: Female
  Weight: 90.72 kg

DRUGS (1)
  1. FLUOXETINE [Suspect]
     Indication: DEPRESSION
     Dosage: 3 CAPSULES ONCE DAILY TAKEN BY MOUTH
     Route: 048
     Dates: start: 20140515, end: 20140624

REACTIONS (3)
  - Drug ineffective [None]
  - Product substitution issue [None]
  - Disease recurrence [None]
